FAERS Safety Report 4312886-X (Version None)
Quarter: 2004Q1

REPORT INFORMATION
  Report Type: 
  Country: None (occurrence: None)
  Receive Date: 20040304
  Receipt Date: 20040225
  Transmission Date: 20041129
  Serious: Yes (Death)
  Sender: FDA-Public Use
  Company Number: 2004-02-1848

PATIENT
  Sex: Female

DRUGS (1)
  1. INTRON A [Suspect]

REACTIONS (3)
  - HAEMODIALYSIS [None]
  - MYOCARDIAL INFARCTION [None]
  - PROCEDURAL COMPLICATION [None]
